FAERS Safety Report 18640327 (Version 3)
Quarter: 2021Q2

REPORT INFORMATION
  Report Type: Spontaneous
  Country: BR (occurrence: BR)
  Receive Date: 20201220
  Receipt Date: 20210604
  Transmission Date: 20210717
  Serious: Yes (Other)
  Sender: FDA-Public Use
  Company Number: BR-CELLTRION INC.-2020BR033418

PATIENT

DRUGS (15)
  1. REMSIMA [Suspect]
     Active Substance: INFLIXIMAB
     Dosage: UNK (ROUTE: ENDOVENOUS)
     Dates: start: 20201203
  2. REMSIMA [Suspect]
     Active Substance: INFLIXIMAB
     Dosage: UNK (2 AMPOULES 100MG EACH 6 WEEKS)
     Route: 042
     Dates: start: 20210521
  3. ATENOLOL. [Concomitant]
     Active Substance: ATENOLOL
     Dosage: 1 COMP, DIA (MORE OR LESS 10 YEARS)
     Route: 048
  4. LEFLUNOMIDE. [Concomitant]
     Active Substance: LEFLUNOMIDE
     Indication: RHEUMATOID ARTHRITIS
     Dosage: 1 CAPS/ DAY
     Route: 048
  5. REMSIMA [Suspect]
     Active Substance: INFLIXIMAB
     Indication: RHEUMATOID ARTHRITIS
     Dosage: 200 MG (2 BOTTLES OF 100 MG) EVERY 6 WEEKS VIA ENDOVENOUS ROUTE (ABOUT 2 YEARS AGO TO 08OCT2020)
  6. LOSARTAN. [Concomitant]
     Active Substance: LOSARTAN
     Indication: HYPERTENSION
     Dosage: 2 TABLETS PER DAY IN THE MORNING AND NIGHT (FOR ABOUT 20 YEARS)
     Route: 048
  7. GLIFAGE [Concomitant]
     Active Substance: METFORMIN HYDROCHLORIDE
     Indication: PRODUCT USED FOR UNKNOWN INDICATION
     Dosage: 2 TABLETS PER DAY IN THE AFTERNOON AND NIGHT (FOR ABOUT 20 YEARS)
     Route: 048
  8. OMEPRAZOLE. [Concomitant]
     Active Substance: OMEPRAZOLE
     Dosage: 2 COMP, QD
     Route: 048
  9. HYDRALAZINE [Concomitant]
     Active Substance: HYDRALAZINE HYDROCHLORIDE
     Indication: HYPERTENSION
     Dosage: 1 TABLET PER DAY (FOR ABOUT 20 YEARS)
     Route: 048
  10. ATENOLOL. [Concomitant]
     Active Substance: ATENOLOL
     Indication: HYPERTENSION
     Dosage: 2 TABLETS PER DAY IN THE MORNING AND NIGHT (FOR ABOUT 20 YEARS)
     Route: 048
  11. HYDRALAZINE [Concomitant]
     Active Substance: HYDRALAZINE HYDROCHLORIDE
     Dosage: 1 CAPS, DIA
     Route: 048
  12. LOSARTAN. [Concomitant]
     Active Substance: LOSARTAN
     Dosage: 2 COMP, DIA (SINCE SHE WAS 32 YEARS OLD)
     Route: 048
  13. LEFLUNOMIDA [Concomitant]
     Active Substance: LEFLUNOMIDE
     Indication: RHEUMATOID ARTHRITIS
     Dosage: 1 TABLET A DAY
     Dates: start: 2014
  14. INDAPAMIDE. [Concomitant]
     Active Substance: INDAPAMIDE
     Dosage: 1 CAPS, QD
     Route: 048
  15. D VITAMINE [Concomitant]
     Indication: BLOOD CALCIUM
     Dosage: 1 CAPS, DIA
     Route: 048

REACTIONS (15)
  - Nausea [Unknown]
  - Arthralgia [Recovered/Resolved]
  - Off label use [Unknown]
  - Product dose omission issue [Unknown]
  - Pain in extremity [Recovered/Resolved]
  - Pain [Unknown]
  - Fatigue [Unknown]
  - Tooth extraction [Unknown]
  - Atrophy [Unknown]
  - Muscle rigidity [Recovered/Resolved]
  - Gait disturbance [Unknown]
  - Treatment delayed [Unknown]
  - Headache [Unknown]
  - Joint swelling [Unknown]
  - Dizziness [Unknown]

NARRATIVE: CASE EVENT DATE: 20201123
